FAERS Safety Report 14013702 (Version 1)
Quarter: 2017Q3

REPORT INFORMATION
  Report Type: Spontaneous
  Country: None (occurrence: US)
  Receive Date: 20170926
  Receipt Date: 20170926
  Transmission Date: 20171128
  Serious: Yes (Other)
  Sender: FDA-Public Use
  Company Number: US-EXELTIS USA INC.-2027820

PATIENT
  Sex: Female

DRUGS (1)
  1. PREGNITUDE [Suspect]
     Active Substance: DIETARY SUPPLEMENT
     Route: 048

REACTIONS (1)
  - Abortion spontaneous [Unknown]
